FAERS Safety Report 24068920 (Version 2)
Quarter: 2024Q3

REPORT INFORMATION
  Report Type: Spontaneous
  Country: SG (occurrence: SG)
  Receive Date: 20240710
  Receipt Date: 20240710
  Transmission Date: 20241016
  Serious: No
  Sender: ROCHE
  Company Number: SG-ROCHE-3431744

PATIENT
  Age: 79 Year
  Sex: Female
  Weight: 63.0 kg

DRUGS (2)
  1. PHESGO [Suspect]
     Active Substance: HYALURONIDASE-ZZXF\PERTUZUMAB\TRASTUZUMAB
     Indication: Breast cancer
     Dosage: ONE JAB, THEN 2 WEEKS OF PILLS AND 2 WEEKS BREAK THEN JAB AGAIN, 2 WEEKS OF PILLS AND 2 WEEKS BREAK
     Route: 065
     Dates: end: 20230929
  2. CAPECITABINE [Suspect]
     Active Substance: CAPECITABINE
     Indication: Product used for unknown indication
     Route: 048

REACTIONS (7)
  - Mouth ulceration [Unknown]
  - Lethargy [Unknown]
  - Asthenia [Unknown]
  - Somnolence [Unknown]
  - Decreased appetite [Unknown]
  - Anxiety [Unknown]
  - Nausea [Unknown]
